APPROVED DRUG PRODUCT: PROPRANOLOL HYDROCHLORIDE
Active Ingredient: PROPRANOLOL HYDROCHLORIDE
Strength: 20MG
Dosage Form/Route: TABLET;ORAL
Application: A071972 | Product #002 | TE Code: AB
Applicant: IMPAX LABORATORIES INC
Approved: Apr 6, 1988 | RLD: No | RS: No | Type: RX